FAERS Safety Report 5411289-4 (Version None)
Quarter: 2007Q3

REPORT INFORMATION
  Report Type: 
  Country: None (occurrence: None)
  Receive Date: 20070810
  Receipt Date: 20070731
  Transmission Date: 20080115
  Serious: Yes (Hospitalization)
  Sender: FDA-Public Use
  Company Number: FR-ROCHE-510074

PATIENT
  Age: 30 Year
  Sex: Male

DRUGS (1)
  1. LARIAM [Suspect]
     Indication: MALARIA PROPHYLAXIS
     Dosage: TOTAL OF THREE TABLETS. SECOND TABLET TAKEN IN CHRISTMAS 2004.
     Route: 065
     Dates: start: 20041201

REACTIONS (12)
  - ANXIETY [None]
  - DEPRESSION [None]
  - GASTROINTESTINAL DISORDER [None]
  - HEADACHE [None]
  - HYPERHIDROSIS [None]
  - NAUSEA [None]
  - PANIC ATTACK [None]
  - PARAESTHESIA [None]
  - SENSATION OF FOREIGN BODY [None]
  - SOCIAL PHOBIA [None]
  - TINNITUS [None]
  - VOMITING [None]
